FAERS Safety Report 18702041 (Version 5)
Quarter: 2021Q2

REPORT INFORMATION
  Report Type: Spontaneous
  Country: US (occurrence: US)
  Receive Date: 20210105
  Receipt Date: 20210403
  Transmission Date: 20210717
  Serious: Yes (Life-Threatening, Hospitalization, Other)
  Sender: FDA-Public Use
  Company Number: US-UNITED THERAPEUTICS-UNT-2020-019885

PATIENT
  Age: 55 Year
  Sex: Male
  Weight: 155.47 kg

DRUGS (10)
  1. LETAIRIS [Suspect]
     Active Substance: AMBRISENTAN
     Indication: PULMONARY CAPILLARY HAEMANGIOMATOSIS
     Dosage: 5 MG, QD
     Route: 048
  2. REMODULIN [Suspect]
     Active Substance: TREPROSTINIL
     Indication: PULMONARY ARTERIAL HYPERTENSION
     Dosage: UNK, CONTINUING
     Route: 058
     Dates: start: 20201010, end: 2020
  3. ELIQUIS [Concomitant]
     Active Substance: APIXABAN
     Indication: PRODUCT USED FOR UNKNOWN INDICATION
     Dosage: UNK
     Route: 065
  4. UPTRAVI [Concomitant]
     Active Substance: SELEXIPAG
     Indication: PRODUCT USED FOR UNKNOWN INDICATION
     Dosage: UNK
     Route: 065
  5. ADCIRCA [Concomitant]
     Active Substance: TADALAFIL
     Indication: PULMONARY ARTERIAL HYPERTENSION
     Dosage: UNK
     Route: 065
  6. REMODULIN [Suspect]
     Active Substance: TREPROSTINIL
     Dosage: 0.0357 ?G/KG, CONTINUING
     Route: 058
     Dates: start: 2020, end: 2020
  7. REMODULIN [Suspect]
     Active Substance: TREPROSTINIL
     Dosage: 0.0377 ?G/KG, CONTINUING
     Route: 058
     Dates: start: 2020, end: 202101
  8. REMODULIN [Suspect]
     Active Substance: TREPROSTINIL
     Indication: PULMONARY ARTERIAL HYPERTENSION
     Dosage: UNK, CONTINUING
     Route: 041
     Dates: start: 202101
  9. VELETRI [Suspect]
     Active Substance: EPOPROSTENOL
     Indication: PULMONARY ARTERIAL HYPERTENSION
     Dosage: 31 NG/KG/MIN
     Route: 042
     Dates: start: 202101
  10. LETAIRIS [Suspect]
     Active Substance: AMBRISENTAN
     Indication: PULMONARY ARTERIAL HYPERTENSION
     Dosage: 10 MG, QD
     Route: 048
     Dates: start: 20191203

REACTIONS (17)
  - Infusion site pain [Unknown]
  - Infusion site discharge [Unknown]
  - Infusion site swelling [Unknown]
  - Weight increased [Unknown]
  - Blood pressure decreased [Unknown]
  - Therapy non-responder [Unknown]
  - Tachycardia [Not Recovered/Not Resolved]
  - Dyspnoea [Recovered/Resolved]
  - Pulmonary veno-occlusive disease [Not Recovered/Not Resolved]
  - Pulmonary oedema [Unknown]
  - Hypoxia [Recovered/Resolved]
  - Headache [Unknown]
  - Infusion site warmth [Unknown]
  - Infusion site erythema [Unknown]
  - Unintentional use for unapproved indication [Unknown]
  - Fluid overload [Not Recovered/Not Resolved]
  - Pulmonary capillary haemangiomatosis [Not Recovered/Not Resolved]

NARRATIVE: CASE EVENT DATE: 2020
